FAERS Safety Report 8830419 (Version 1)
Quarter: 2012Q4

REPORT INFORMATION
  Report Type: 
  Country: CN (occurrence: CN)
  Receive Date: 20121009
  Receipt Date: 20121009
  Transmission Date: 20130627
  Serious: Yes (Other)
  Sender: FDA-Public Use
  Company Number: CN-PFIZER INC-2012249424

PATIENT

DRUGS (1)
  1. NORVASC [Suspect]
     Route: 048

REACTIONS (2)
  - Bladder cancer [Unknown]
  - Haematuria [Unknown]
